FAERS Safety Report 6690800-X (Version None)
Quarter: 2010Q2

REPORT INFORMATION
  Report Type: 
  Country: None (occurrence: None)
  Receive Date: 20100421
  Receipt Date: 20100414
  Transmission Date: 20101027
  Serious: Yes (Hospitalization, Other)
  Sender: FDA-Public Use
  Company Number: GB-BAXTER-2009BH019759

PATIENT
  Age: 88 Year
  Sex: Female
  Weight: 51 kg

DRUGS (10)
  1. HEPARIN SODIUM 1,000 UNITS AND SODIUM CHLORIDE 0.9% [Suspect]
     Indication: INTRAVENOUS CATHETER MANAGEMENT
     Route: 013
     Dates: start: 20091218, end: 20091218
  2. HEPARIN SODIUM 1,000 UNITS AND SODIUM CHLORIDE 0.9% [Suspect]
     Route: 013
     Dates: start: 20091218, end: 20091218
  3. VISIPAQUE [Suspect]
     Indication: ANGIOGRAM
     Route: 013
     Dates: start: 20091218, end: 20091218
  4. ASPIRIN [Concomitant]
     Indication: DRUG USE FOR UNKNOWN INDICATION
     Route: 048
  5. SIMVASTATIN [Concomitant]
     Indication: DRUG USE FOR UNKNOWN INDICATION
     Route: 048
  6. GLYCERYL TRINITRATE [Concomitant]
     Indication: DRUG USE FOR UNKNOWN INDICATION
     Route: 060
  7. LIDOCAINE [Concomitant]
     Indication: ANGIOGRAM
     Route: 058
  8. BIVALIRUDIN [Concomitant]
     Indication: ANGIOGRAM
     Route: 042
     Dates: start: 20091218
  9. CLOPIDOGREL [Concomitant]
     Indication: DRUG USE FOR UNKNOWN INDICATION
     Route: 048
  10. ISOSORBIDE DINITRATE [Concomitant]
     Indication: ANGIOGRAM
     Route: 022
     Dates: start: 20091218

REACTIONS (2)
  - CEREBROVASCULAR ACCIDENT [None]
  - CRANIAL NERVE PALSIES MULTIPLE [None]
